FAERS Safety Report 7247554-8 (Version None)
Quarter: 2011Q1

REPORT INFORMATION
  Report Type: 
  Country: None (occurrence: None)
  Receive Date: 20110127
  Receipt Date: 20110126
  Transmission Date: 20110831
  Serious: Yes (Hospitalization)
  Sender: FDA-Public Use
  Company Number: GXKR2011DE00716

PATIENT
  Age: 80 Year
  Sex: Female
  Weight: 48 kg

DRUGS (4)
  1. CAPTOPRIL AND HYDROCHLOROTHIAZIDE [Suspect]
     Dosage: 50/25
  2. BASOSYX [Concomitant]
  3. FERRO ^SANOL^ [Concomitant]
  4. AMLODIPINE [Concomitant]

REACTIONS (1)
  - ANGIOEDEMA [None]
